FAERS Safety Report 6987842-3 (Version None)
Quarter: 2010Q3

REPORT INFORMATION
  Report Type: 
  Country: None (occurrence: None)
  Receive Date: 20100914
  Receipt Date: 20100901
  Transmission Date: 20110219
  Serious: Yes (Other)
  Sender: FDA-Public Use
  Company Number: 2010NA002302

PATIENT
  Age: 72 Year
  Sex: Male

DRUGS (3)
  1. AMLODIPINE BESYLATE [Suspect]
     Indication: HYPERTENSION
     Dosage: 5 MG; QD; PO
     Route: 048
     Dates: start: 20100723, end: 20100727
  2. ATORVASTATIN CALCIUM [Concomitant]
  3. SOLARAZE [Concomitant]

REACTIONS (3)
  - NO THERAPEUTIC RESPONSE [None]
  - RASH [None]
  - SKIN REACTION [None]
